FAERS Safety Report 7712963-7 (Version None)
Quarter: 2011Q3

REPORT INFORMATION
  Report Type: 
  Country: None (occurrence: None)
  Receive Date: 20110826
  Receipt Date: 20110816
  Transmission Date: 20111222
  Serious: Yes (Other)
  Sender: FDA-Public Use
  Company Number: PHBS2007US21815

PATIENT
  Sex: Male
  Weight: 70 kg

DRUGS (6)
  1. EXJADE [Suspect]
     Indication: IRON OVERLOAD
     Dosage: 500 MG, DAILY
     Route: 048
     Dates: start: 20091229
  2. ZINC [Concomitant]
  3. OXYCODONE HCL [Concomitant]
     Dosage: 40 MG, BID
     Route: 048
  4. ASCORBIC ACID [Concomitant]
     Route: 048
  5. HYDROXYUREA [Concomitant]
     Indication: SICKLE CELL ANAEMIA
     Dosage: 1000
     Route: 048
     Dates: start: 20090228
  6. VITAMIN E [Concomitant]
     Route: 048

REACTIONS (3)
  - MITRAL VALVE DISEASE [None]
  - NAUSEA [None]
  - ABDOMINAL PAIN [None]
